FAERS Safety Report 7112349-2 (Version None)
Quarter: 2010Q4

REPORT INFORMATION
  Report Type: 
  Country: None (occurrence: None)
  Receive Date: 20101119
  Receipt Date: 20100819
  Transmission Date: 20110411
  Serious: No
  Sender: FDA-Public Use
  Company Number: A0876749A

PATIENT
  Age: 87 Year
  Sex: Male

DRUGS (9)
  1. AVODART [Suspect]
     Indication: BENIGN PROSTATIC HYPERPLASIA
     Dosage: 1CAP PER DAY
     Route: 048
     Dates: start: 20100501
  2. UNSPECIFIED MEDICATION [Concomitant]
  3. UNSPECIFIED MEDICATION [Concomitant]
  4. ARICEPT [Concomitant]
  5. LUNESTA [Concomitant]
  6. REQUIP [Concomitant]
  7. NAMENDA [Concomitant]
  8. VESICARE [Concomitant]
  9. PROVIGIL [Concomitant]

REACTIONS (2)
  - DRUG INEFFECTIVE [None]
  - PROSTATIC SPECIFIC ANTIGEN INCREASED [None]
